FAERS Safety Report 4723775-0 (Version None)
Quarter: 2005Q3

REPORT INFORMATION
  Report Type: 
  Country: None (occurrence: None)
  Receive Date: 20050722
  Receipt Date: 20050716
  Transmission Date: 20060218
  Serious: Yes (Other)
  Sender: FDA-Public Use
  Company Number: GXKR2005DE01331

PATIENT
  Age: 72 Year
  Sex: Male

DRUGS (4)
  1. HEPARIN [Suspect]
     Indication: CORONARY ARTERY SURGERY
     Dosage: SEE IMAGE, INTRAVENOUS
     Route: 042
  2. ACETYLSALICYLIC ACID SRT [Suspect]
  3. ATORVASTATIN CALCIUM [Suspect]
  4. CLOPIDOGREL BISULFATE [Suspect]
     Dosage: SEE IMAGE, ORAL
     Route: 048

REACTIONS (3)
  - CHEST PAIN [None]
  - DRUG INTERACTION [None]
  - HEPARIN-INDUCED THROMBOCYTOPENIA [None]
